FAERS Safety Report 12603046 (Version 1)
Quarter: 2016Q3

REPORT INFORMATION
  Report Type: Spontaneous
  Country: FR (occurrence: FR)
  Receive Date: 20160728
  Receipt Date: 20160728
  Transmission Date: 20161109
  Serious: Yes (Other)
  Sender: FDA-Public Use
  Company Number: FR-ASTRAZENECA-2016SE79980

PATIENT
  Age: 57 Year
  Sex: Male

DRUGS (4)
  1. BRILIQUE [Suspect]
     Active Substance: TICAGRELOR
     Indication: ACUTE MYOCARDIAL INFARCTION
     Dosage: ONCE/SINGLE ADMINISTRATION, UNKNOWN DOSE
     Route: 048
     Dates: start: 20160719, end: 20160719
  2. ENOXAPARINE [Concomitant]
     Active Substance: ENOXAPARIN
     Dates: start: 20160719
  3. ASPIRINE [Concomitant]
     Active Substance: ASPIRIN
     Indication: ACUTE CORONARY SYNDROME
     Dates: start: 20160719
  4. ASPIRINE [Concomitant]
     Active Substance: ASPIRIN
     Indication: ELECTROCARDIOGRAM ST SEGMENT ELEVATION
     Dates: start: 20160719

REACTIONS (2)
  - Electrocardiogram abnormal [Recovered/Resolved]
  - Cardiac arrest [Recovered/Resolved]

NARRATIVE: CASE EVENT DATE: 20160720
